FAERS Safety Report 26148673 (Version 1)
Quarter: 2025Q4

REPORT INFORMATION
  Report Type: Spontaneous
  Country: CN (occurrence: CN)
  Receive Date: 20251212
  Receipt Date: 20251212
  Transmission Date: 20260118
  Serious: Yes (Hospitalization)
  Sender: BAUSCH AND LOMB
  Company Number: CN-BAUSCH-BH-2025-021794

PATIENT
  Age: 56 Year
  Sex: Male

DRUGS (13)
  1. NIFEDIPINE [Suspect]
     Active Substance: NIFEDIPINE
     Indication: Hyperaldosteronism
     Route: 065
  2. DILTIAZEM [Suspect]
     Active Substance: DILTIAZEM
     Indication: Hyperaldosteronism
     Route: 065
  3. DOXYCYCLINE [Interacting]
     Active Substance: DOXYCYCLINE
     Indication: Brucellosis
     Route: 065
  4. VALSARTAN [Interacting]
     Active Substance: VALSARTAN
     Indication: Hyperaldosteronism
     Route: 065
  5. SPIRONOLACTONE [Interacting]
     Active Substance: SPIRONOLACTONE
     Indication: Hyperaldosteronism
     Route: 065
  6. AMLODIPINE [Interacting]
     Active Substance: AMLODIPINE BESYLATE
     Indication: Hyperaldosteronism
     Route: 065
  7. BISOPROLOL [Interacting]
     Active Substance: BISOPROLOL
     Indication: Hyperaldosteronism
     Route: 065
  8. TERAZOSIN [Interacting]
     Active Substance: TERAZOSIN HYDROCHLORIDE
     Indication: Hyperaldosteronism
     Route: 065
  9. DOXAZOSIN [Interacting]
     Active Substance: DOXAZOSIN MESYLATE
     Indication: Hyperaldosteronism
     Route: 065
  10. ISOSORBIDE MONONITRATE [Interacting]
     Active Substance: ISOSORBIDE MONONITRATE
     Indication: Hyperaldosteronism
     Route: 065
  11. OLMESARTAN [Interacting]
     Active Substance: OLMESARTAN
     Indication: Hyperaldosteronism
     Route: 065
  12. CLONIDINE [Interacting]
     Active Substance: CLONIDINE
     Indication: Hyperaldosteronism
     Route: 065
  13. RIFAMPIN [Interacting]
     Active Substance: RIFAMPIN
     Indication: Brucellosis
     Route: 065

REACTIONS (3)
  - Drug interaction [Recovered/Resolved]
  - Hypertension [Recovered/Resolved]
  - Therapeutic product effect decreased [Unknown]
